FAERS Safety Report 10350577 (Version 1)
Quarter: 2014Q3

REPORT INFORMATION
  Report Type: Spontaneous
  Country: US (occurrence: US)
  Receive Date: 20140730
  Receipt Date: 20140730
  Transmission Date: 20150326
  Serious: No
  Sender: FDA-Public Use
  Company Number: US-BRISTOL-MYERS SQUIBB COMPANY-21067418

PATIENT
  Age: 69 Year
  Sex: Female
  Weight: 98.41 kg

DRUGS (1)
  1. FARXIGA [Suspect]
     Active Substance: DAPAGLIFLOZIN PROPANEDIOL
     Indication: TYPE 2 DIABETES MELLITUS
     Dates: end: 20140618

REACTIONS (2)
  - Glomerular filtration rate decreased [Unknown]
  - Blood glucose fluctuation [Unknown]
